FAERS Safety Report 17117173 (Version 1)
Quarter: 2019Q4

REPORT INFORMATION
  Report Type: Spontaneous
  Country: ES (occurrence: ES)
  Receive Date: 20191205
  Receipt Date: 20191205
  Transmission Date: 20200122
  Serious: Yes (Life-Threatening, Hospitalization, Other)
  Sender: FDA-Public Use
  Company Number: ES-BAYER-2019-212991

PATIENT
  Age: 32 Year
  Sex: Male

DRUGS (9)
  1. VANCOMYCIN [Concomitant]
     Active Substance: VANCOMYCIN
  2. SORAFENIB (RAF KINASE INHIBITOR) [Suspect]
     Active Substance: SORAFENIB
     Indication: ACUTE MYELOID LEUKAEMIA RECURRENT
  3. CYCLOPHOSPHAMIDE. [Suspect]
     Active Substance: CYCLOPHOSPHAMIDE
  4. MYCOPHENOLATE [Suspect]
     Active Substance: MYCOPHENOLIC ACID
  5. AZACITIDINE. [Concomitant]
     Active Substance: AZACITIDINE
  6. TACROLIMUS. [Suspect]
     Active Substance: TACROLIMUS
  7. LEVOFLOXACIN. [Concomitant]
     Active Substance: LEVOFLOXACIN
  8. PIPERACILLIN/TAZOBACTAM [Concomitant]
     Active Substance: PIPERACILLIN SODIUM\TAZOBACTAM SODIUM
  9. MICAFUNGIN. [Concomitant]
     Active Substance: MICAFUNGIN SODIUM

REACTIONS (6)
  - Aspergillus infection [None]
  - Venoocclusive disease [None]
  - Acute graft versus host disease in skin [None]
  - Graft versus host disease in lung [None]
  - Off label use [None]
  - Product use in unapproved indication [None]
